FAERS Safety Report 24417207 (Version 1)
Quarter: 2024Q4

REPORT INFORMATION
  Report Type: Spontaneous
  Country: US (occurrence: None)
  Receive Date: 20241009
  Receipt Date: 20241009
  Transmission Date: 20250115
  Serious: Yes (Other)
  Sender: Public
  Company Number: None

PATIENT
  Age: 64 Year
  Sex: Female
  Weight: 73.03 kg

DRUGS (1)
  1. GLATIRAMER ACETATE [Suspect]
     Active Substance: GLATIRAMER ACETATE
     Indication: Multiple sclerosis
     Dosage: FREQUENCY : 3 TIMES A WEEK;?
     Route: 058
     Dates: start: 20240927, end: 20241005

REACTIONS (5)
  - Pruritus [None]
  - Rash [None]
  - Urticaria [None]
  - Injection site reaction [None]
  - Hypersensitivity [None]

NARRATIVE: CASE EVENT DATE: 20241006
